FAERS Safety Report 5547541-1 (Version None)
Quarter: 2007Q4

REPORT INFORMATION
  Report Type: 
  Country: None (occurrence: None)
  Receive Date: 20071211
  Receipt Date: 20070226
  Transmission Date: 20080405
  Serious: No
  Sender: FDA-Public Use
  Company Number: US-AMGEN-KDL212703

PATIENT
  Sex: Female

DRUGS (2)
  1. ENBREL [Suspect]
     Indication: PSORIATIC ARTHROPATHY
     Route: 058
     Dates: start: 20070205
  2. ENBREL [Suspect]
     Indication: PSORIASIS

REACTIONS (5)
  - CONTUSION [None]
  - FALL [None]
  - PRURITUS [None]
  - RASH PUSTULAR [None]
  - SKIN INJURY [None]
